FAERS Safety Report 11463191 (Version 1)
Quarter: 2015Q3

REPORT INFORMATION
  Report Type: Report from Study
  Country: US (occurrence: US)
  Receive Date: 20150905
  Receipt Date: 20150905
  Transmission Date: 20151125
  Serious: No
  Sender: FDA-Public Use
  Company Number: PHEH2015US009381

PATIENT
  Age: 48 Year
  Sex: Female
  Weight: 62.13 kg

DRUGS (1)
  1. GILENYA [Suspect]
     Active Substance: FINGOLIMOD HYDROCHLORIDE
     Indication: MULTIPLE SCLEROSIS
     Dosage: 0.5 MG, QD
     Route: 048
     Dates: start: 20150518

REACTIONS (8)
  - Chest pain [Recovered/Resolved]
  - Vein disorder [Recovered/Resolved]
  - Band sensation [Recovered/Resolved]
  - Anxiety [Recovered/Resolved]
  - Blood pressure abnormal [Recovered/Resolved]
  - Thinking abnormal [Unknown]
  - Heart rate abnormal [Recovered/Resolved]
  - Spinal pain [Unknown]

NARRATIVE: CASE EVENT DATE: 20150518
